FAERS Safety Report 15689440 (Version 1)
Quarter: 2018Q4

REPORT INFORMATION
  Report Type: Report from Study
  Country: GB (occurrence: GB)
  Receive Date: 20181205
  Receipt Date: 20181205
  Transmission Date: 20190205
  Serious: Yes (Other)
  Sender: FDA-Public Use
  Company Number: GB-PFIZER INC-2018493443

PATIENT

DRUGS (3)
  1. CAPECITABINE. [Suspect]
     Active Substance: CAPECITABINE
     Indication: OESOPHAGEAL ADENOCARCINOMA
     Dosage: UNK, CYCLIC
  2. AZD8931 [Suspect]
     Active Substance: SAPITINIB
     Indication: OESOPHAGEAL ADENOCARCINOMA
     Dosage: 20 MG, CYCLIC (TWICE-DAILY, 4 DAYS ON, 3 DAYS OFF, IN A 3-WEEK CYCLE)
  3. OXALIPLATIN. [Suspect]
     Active Substance: OXALIPLATIN
     Indication: OESOPHAGEAL ADENOCARCINOMA
     Dosage: UNK, CYCLIC

REACTIONS (1)
  - Wound dehiscence [Unknown]
